FAERS Safety Report 25684875 (Version 1)
Quarter: 2025Q3

REPORT INFORMATION
  Report Type: Spontaneous
  Country: JP (occurrence: JP)
  Receive Date: 20250815
  Receipt Date: 20250815
  Transmission Date: 20251021
  Serious: Yes (Death, Other)
  Sender: AMGEN
  Company Number: JP-AMGEN-JPNSP2025160489

PATIENT

DRUGS (4)
  1. ETANERCEPT [Suspect]
     Active Substance: ETANERCEPT
     Indication: Colitis ulcerative
     Route: 065
  2. ETANERCEPT [Suspect]
     Active Substance: ETANERCEPT
     Indication: Off label use
  3. TOFACITINIB [Concomitant]
     Active Substance: TOFACITINIB
  4. VEDOLIZUMAB [Concomitant]
     Active Substance: VEDOLIZUMAB

REACTIONS (19)
  - Abscess intestinal [Fatal]
  - Herpes zoster [Unknown]
  - Dyslipidaemia [Unknown]
  - Neutropenia [Unknown]
  - Rhabdomyolysis [Unknown]
  - Hepatic function abnormal [Unknown]
  - Neoplasm malignant [Unknown]
  - Colon cancer [Unknown]
  - Testis cancer [Unknown]
  - Gastrointestinal perforation [Unknown]
  - Embolism venous [Unknown]
  - Interstitial lung disease [Unknown]
  - Hepatitis B reactivation [Unknown]
  - Cardiovascular disorder [Unknown]
  - Infection [Unknown]
  - Haemoglobin decreased [Unknown]
  - Lymphopenia [Unknown]
  - Therapeutic product effect incomplete [Unknown]
  - Off label use [Unknown]
